FAERS Safety Report 10477268 (Version 1)
Quarter: 2014Q3

REPORT INFORMATION
  Report Type: Spontaneous
  Country: CA (occurrence: None)
  Receive Date: 20140923
  Receipt Date: 20140923
  Transmission Date: 20150326
  Serious: Yes (Other)
  Sender: FDA-Public Use
  Company Number: CA-17116

PATIENT
  Age: 82 Year
  Sex: Male

DRUGS (15)
  1. PMS-SENNOSIDES [Concomitant]
  2. HYDROCHLOROTHIAZIDE. [Concomitant]
     Active Substance: HYDROCHLOROTHIAZIDE
  3. ENALAPRIL [Concomitant]
     Active Substance: ENALAPRIL
  4. APO-LEVOCARB [Concomitant]
     Active Substance: CARBIDOPA\LEVODOPA
  5. VITAMINS WITH MINERALS [Concomitant]
     Active Substance: MINERALS\VITAMINS
  6. NOVO-GESIC C [Concomitant]
  7. FERROUS SULFATE [Concomitant]
     Active Substance: FERROUS SULFATE\FERROUS SULFATE, DRIED
  8. PREGABALIN. [Concomitant]
     Active Substance: PREGABALIN
  9. PMS-DOCUSATE SODIUM [Concomitant]
  10. NEO ACTIVE VITAMIN B12 [Concomitant]
  11. FIRMAGON [Suspect]
     Active Substance: DEGARELIX ACETATE
     Indication: PROSTATE CANCER
     Route: 058
     Dates: start: 20111021
  12. HYDROMORPH CONTIN [Concomitant]
     Active Substance: HYDROMORPHONE
  13. PRAVASTATIN [Concomitant]
     Active Substance: PRAVASTATIN\PRAVASTATIN SODIUM
  14. ACCOMIN MULTIVITAMIN [Concomitant]
  15. QUINIDINE [Concomitant]
     Active Substance: QUINIDINE

REACTIONS (2)
  - Injection site nodule [None]
  - Renal failure [None]

NARRATIVE: CASE EVENT DATE: 201408
